FAERS Safety Report 13047483 (Version 1)
Quarter: 2016Q4

REPORT INFORMATION
  Report Type: Spontaneous
  Country: JP (occurrence: JP)
  Receive Date: 20161220
  Receipt Date: 20161220
  Transmission Date: 20170207
  Serious: Yes (Hospitalization)
  Sender: FDA-Public Use
  Company Number: JP-PFIZER INC-2016585281

PATIENT
  Age: 86 Year
  Sex: Female

DRUGS (7)
  1. SEIBULE [Suspect]
     Active Substance: MIGLITOL
     Indication: DIABETES MELLITUS
     Dosage: 25 MG, 3X/DAY
     Route: 048
  2. BAYASPIRIN [Concomitant]
     Active Substance: ASPIRIN
     Dosage: UNK
  3. OLMETEC [Concomitant]
     Active Substance: OLMESARTAN MEDOXOMIL
     Dosage: UNK
  4. OMEPRAZOLE. [Concomitant]
     Active Substance: OMEPRAZOLE
     Dosage: UNK
  5. NOVORAPID [Concomitant]
     Active Substance: INSULIN ASPART
     Dosage: UNK
  6. ITOPRIDE HYDROCHLORIDE [Concomitant]
     Active Substance: ITOPRIDE HYDROCHLORIDE
     Dosage: UNK
  7. NIFEDIPINE. [Concomitant]
     Active Substance: NIFEDIPINE
     Dosage: UNK

REACTIONS (3)
  - Abdominal distension [Unknown]
  - Large intestinal stenosis [Unknown]
  - Ileus [Unknown]

NARRATIVE: CASE EVENT DATE: 201606
